FAERS Safety Report 7803157-5 (Version None)
Quarter: 2011Q4

REPORT INFORMATION
  Report Type: 
  Country: None (occurrence: None)
  Receive Date: 20111007
  Receipt Date: 20110727
  Transmission Date: 20120403
  Serious: No
  Sender: FDA-Public Use
  Company Number: US-ABBOTT-11P-163-0840863-00

PATIENT
  Sex: Female
  Weight: 90.8 kg

DRUGS (8)
  1. GLYBURIDE [Concomitant]
     Indication: DIABETES MELLITUS
  2. ANTIBIOTICS [Concomitant]
     Indication: CYSTITIS
     Dates: start: 20110601, end: 20110601
  3. KALETRA [Suspect]
     Indication: INJURY ASSOCIATED WITH DEVICE
     Dosage: 200/50MG, 2 TABLETS DAILY
     Dates: start: 20110603, end: 20110701
  4. KALETRA [Suspect]
     Indication: PROPHYLAXIS
  5. ATENOLOL [Concomitant]
     Indication: HYPERTENSION
  6. UNKNOWN ORAL MEDICATION [Concomitant]
     Indication: VULVOVAGINAL MYCOTIC INFECTION
     Dates: start: 20110601, end: 20110601
  7. TRUVADA [Concomitant]
     Indication: PROPHYLAXIS
     Dates: start: 20110603
  8. TRUVADA [Concomitant]
     Indication: INJURY ASSOCIATED WITH DEVICE

REACTIONS (7)
  - VULVOVAGINAL PRURITUS [None]
  - GENITAL RASH [None]
  - VAGINAL DISCHARGE [None]
  - VULVOVAGINAL MYCOTIC INFECTION [None]
  - BLOOD GLUCOSE INCREASED [None]
  - VULVOVAGINAL SWELLING [None]
  - CYSTITIS [None]
